FAERS Safety Report 6258456-8 (Version None)
Quarter: 2009Q3

REPORT INFORMATION
  Report Type: 
  Country: None (occurrence: None)
  Receive Date: 20090707
  Receipt Date: 20090625
  Transmission Date: 20100115
  Serious: Yes (Other)
  Sender: FDA-Public Use
  Company Number: CN-PFIZER INC-2009233281

PATIENT
  Age: 60 Year

DRUGS (8)
  1. VFEND [Suspect]
     Indication: BRONCHOPULMONARY ASPERGILLOSIS
     Dosage: 200 MG, 2X/DAY
     Route: 042
     Dates: start: 20090402, end: 20090405
  2. EDARAVONE [Concomitant]
     Dosage: 30 MG, 2X/DAY
     Route: 042
     Dates: start: 20090402
  3. PIRACETAM [Concomitant]
     Dosage: 100 MG, 1X/DAY
     Dates: start: 20090402
  4. PIPERACILLIN SODIUM/SULBACTAM SODIUM [Concomitant]
     Dosage: 2.25 G, 3X/DAY
     Route: 042
     Dates: start: 20090402, end: 20090405
  5. MOXIFLOXACIN [Concomitant]
     Dosage: UNK
     Dates: start: 20090405, end: 20090417
  6. PIPERACILLIN SODIUM AND TAZOBACTAM SODIUM [Concomitant]
     Dosage: 4.5 G, 3X/DAY
     Route: 042
     Dates: start: 20090405, end: 20090417
  7. ALL OTHER THERAPEUTIC PRODUCTS [Concomitant]
     Dosage: UNK
     Dates: start: 20090324, end: 20090417
  8. CITICOLINE [Concomitant]
     Dosage: UNK
     Dates: start: 20090324, end: 20090417

REACTIONS (1)
  - BLINDNESS [None]
